FAERS Safety Report 8530293-0 (Version None)
Quarter: 2012Q3

REPORT INFORMATION
  Report Type: 
  Country: None (occurrence: None)
  Receive Date: 20120710
  Receipt Date: 20120627
  Transmission Date: 20120928
  Serious: Yes (Life-Threatening, Hospitalization)
  Sender: FDA-Public Use
  Company Number: 2012MA007990

PATIENT
  Age: 27 Year
  Sex: Male

DRUGS (6)
  1. HALOPERIDOL LACTATE [Suspect]
     Indication: PSYCHOTIC DISORDER
     Dosage: 5 MG;TID;PO
     Route: 048
     Dates: start: 20120403, end: 20120416
  2. QUETIAPINE FUMARATE [Suspect]
     Indication: PSYCHOTIC DISORDER
     Dosage: 100 MG;BID;PO
     Route: 048
     Dates: start: 20120403, end: 20120416
  3. THIAMINE [Concomitant]
  4. CHLORDIAZEPOXIDE [Concomitant]
  5. LORAZEPAM [Concomitant]
  6. VITAMIN B COMPOUND STRONG [Concomitant]

REACTIONS (9)
  - OCULOGYRIC CRISIS [None]
  - JOINT STIFFNESS [None]
  - NEUROLEPTIC MALIGNANT SYNDROME [None]
  - TREMOR [None]
  - HYPERHIDROSIS [None]
  - TACHYCARDIA [None]
  - DRUG INTERACTION [None]
  - BLOOD PRESSURE INCREASED [None]
  - URINARY RETENTION [None]
